FAERS Safety Report 18980473 (Version 1)
Quarter: 2021Q1

REPORT INFORMATION
  Report Type: Report from Study
  Country: CA (occurrence: CA)
  Receive Date: 20210308
  Receipt Date: 20210308
  Transmission Date: 20210420
  Serious: Yes (Hospitalization)
  Sender: FDA-Public Use
  Company Number: NVSC2020CA264511

PATIENT
  Age: 46 Year
  Sex: Female

DRUGS (2)
  1. MAYZENT [Suspect]
     Active Substance: SIPONIMOD
     Dosage: UNK
     Route: 048
     Dates: start: 20200928, end: 20201125
  2. MAYZENT [Suspect]
     Active Substance: SIPONIMOD
     Indication: SECONDARY PROGRESSIVE MULTIPLE SCLEROSIS
     Dosage: UNK
     Route: 048
     Dates: start: 20200821

REACTIONS (8)
  - Asthenia [Recovering/Resolving]
  - Grip strength decreased [Unknown]
  - Cystitis [Unknown]
  - Visual impairment [Recovering/Resolving]
  - Feeling abnormal [Unknown]
  - Balance disorder [Unknown]
  - Dry skin [Unknown]
  - Movement disorder [Unknown]

NARRATIVE: CASE EVENT DATE: 20200928
